FAERS Safety Report 21616699 (Version 8)
Quarter: 2025Q2

REPORT INFORMATION
  Report Type: Spontaneous
  Country: US (occurrence: US)
  Receive Date: 20221118
  Receipt Date: 20250617
  Transmission Date: 20250716
  Serious: No
  Sender: SANOFI AVENTIS
  Company Number: US-SA-SAC20221116000452

PATIENT
  Age: 61 Year
  Sex: Male

DRUGS (26)
  1. DUPIXENT [Suspect]
     Active Substance: DUPILUMAB
     Indication: Dermatitis atopic
     Dosage: 300 MG, QOW
     Route: 058
     Dates: start: 20210702
  2. DUPIXENT [Suspect]
     Active Substance: DUPILUMAB
     Indication: Eczema
  3. DUPIXENT [Suspect]
     Active Substance: DUPILUMAB
     Indication: Asthma
  4. DUPIXENT [Suspect]
     Active Substance: DUPILUMAB
     Indication: Type 2 diabetes mellitus
  5. ACETYLCYSTEINE [Concomitant]
     Active Substance: ACETYLCYSTEINE
  6. ALBUTEROL SULFATE [Concomitant]
     Active Substance: ALBUTEROL SULFATE
  7. AMLODIPINE [Concomitant]
     Active Substance: AMLODIPINE BESYLATE
  8. AMLODIPINE [Concomitant]
     Active Substance: AMLODIPINE BESYLATE
  9. AZELASTINE [Concomitant]
     Active Substance: AZELASTINE
  10. BACLOFEN [Concomitant]
     Active Substance: BACLOFEN
  11. BREO ELLIPTA [Concomitant]
     Active Substance: FLUTICASONE FUROATE\VILANTEROL TRIFENATATE
     Route: 055
  12. CLOBETASOL [Concomitant]
     Active Substance: CLOBETASOL
  13. GABAPENTIN [Concomitant]
     Active Substance: GABAPENTIN
  14. HYDROCHLOROTHIAZIDE [Concomitant]
     Active Substance: HYDROCHLOROTHIAZIDE
  15. OMEPRAZOLE [Concomitant]
     Active Substance: OMEPRAZOLE
  16. OXYCODONE [Concomitant]
     Active Substance: OXYCODONE
  17. PERMETHRIN [Concomitant]
     Active Substance: PERMETHRIN
  18. PIMECROLIMUS [Concomitant]
     Active Substance: PIMECROLIMUS
  19. PREGABALIN [Concomitant]
     Active Substance: PREGABALIN
  20. TAMSULOSIN [Concomitant]
     Active Substance: TAMSULOSIN
  21. TIZANIDINE [Concomitant]
     Active Substance: TIZANIDINE
  22. METHYLPREDNISOLONE [Concomitant]
     Active Substance: METHYLPREDNISOLONE
  23. OMEPRAZOLE\SODIUM BICARBONATE [Concomitant]
     Active Substance: OMEPRAZOLE\SODIUM BICARBONATE
  24. HYDROXYCHLOROQUINE SULFATE [Concomitant]
     Active Substance: HYDROXYCHLOROQUINE SULFATE
  25. HYDROCORTISONE\NEOMYCIN SULFATE [Concomitant]
     Active Substance: HYDROCORTISONE\NEOMYCIN SULFATE
  26. METHYLPREDNISOLONE [Concomitant]
     Active Substance: METHYLPREDNISOLONE

REACTIONS (18)
  - Pyrexia [Unknown]
  - Hyperhidrosis [Unknown]
  - Infection [Recovered/Resolved]
  - Sleep disorder due to a general medical condition [Not Recovered/Not Resolved]
  - Infection [Unknown]
  - Rash [Recovered/Resolved]
  - Discomfort [Recovered/Resolved]
  - Asthma [Recovered/Resolved]
  - Impaired quality of life [Recovered/Resolved]
  - Dermatitis atopic [Unknown]
  - Asthma [Not Recovered/Not Resolved]
  - Impaired quality of life [Not Recovered/Not Resolved]
  - Drug ineffective [Unknown]
  - Product use in unapproved indication [Unknown]
  - Eczema [Unknown]
  - Discomfort [Not Recovered/Not Resolved]
  - Rash [Not Recovered/Not Resolved]
  - Oral herpes [Unknown]

NARRATIVE: CASE EVENT DATE: 20210702
